FAERS Safety Report 5549747-4 (Version None)
Quarter: 2007Q4

REPORT INFORMATION
  Report Type: 
  Country: None (occurrence: None)
  Receive Date: 20071212
  Receipt Date: 20070511
  Transmission Date: 20080405
  Serious: No
  Sender: FDA-Public Use
  Company Number: US-AMGEN-KDL224365

PATIENT
  Sex: Male

DRUGS (3)
  1. ENBREL [Suspect]
     Indication: PSORIATIC ARTHROPATHY
     Route: 058
     Dates: start: 20030501
  2. ENBREL [Suspect]
     Indication: PSORIASIS
  3. SORIATANE [Concomitant]
     Route: 048
     Dates: start: 20040101

REACTIONS (1)
  - THERAPEUTIC RESPONSE DECREASED [None]
